FAERS Safety Report 5075295-4 (Version None)
Quarter: 2006Q3

REPORT INFORMATION
  Report Type: 
  Country: None (occurrence: None)
  Receive Date: 20060809
  Receipt Date: 20060203
  Transmission Date: 20061208
  Serious: No
  Sender: FDA-Public Use
  Company Number: US-AMGEN-KDL167861

PATIENT
  Sex: Male

DRUGS (1)
  1. PROCRIT [Suspect]
     Indication: ANAEMIA OF MALIGNANT DISEASE

REACTIONS (2)
  - PLATELET COUNT DECREASED [None]
  - WHITE BLOOD CELL COUNT DECREASED [None]
